FAERS Safety Report 9265582 (Version 1)
Quarter: 2013Q2

REPORT INFORMATION
  Report Type: Spontaneous
  Country: US (occurrence: US)
  Receive Date: 20130501
  Receipt Date: 20130501
  Transmission Date: 20140414
  Serious: Yes (Hospitalization)
  Sender: FDA-Public Use
  Company Number: US-ABBOTT-13P-163-1080127-00

PATIENT
  Age: 12 Year
  Sex: Male
  Weight: 45.4 kg

DRUGS (3)
  1. HUMIRA [Suspect]
     Indication: CROHN^S DISEASE
     Dates: start: 201209
  2. METHOTREXATE [Suspect]
     Indication: CROHN^S DISEASE
     Dates: start: 20120902
  3. REMICADE [Suspect]
     Indication: CROHN^S DISEASE
     Dosage: LYOPHILIZED POWDER
     Route: 042
     Dates: start: 201109, end: 201209

REACTIONS (6)
  - Abnormal loss of weight [Recovered/Resolved]
  - Drug ineffective [Not Recovered/Not Resolved]
  - Antibody test positive [Not Recovered/Not Resolved]
  - Staphylococcal infection [Unknown]
  - Weight increased [Not Recovered/Not Resolved]
  - Limb injury [Unknown]
